FAERS Safety Report 14071799 (Version 1)
Quarter: 2017Q4

REPORT INFORMATION
  Report Type: Spontaneous
  Country: US (occurrence: US)
  Receive Date: 20171011
  Receipt Date: 20171011
  Transmission Date: 20180321
  Serious: No
  Sender: FDA-Public Use
  Company Number: US-PFIZER INC-2017432120

PATIENT
  Age: 38 Year
  Sex: Female

DRUGS (1)
  1. KERYDIN [Suspect]
     Active Substance: TAVABOROLE
     Indication: ONYCHOMYCOSIS
     Dosage: 10 UNK, 1X/DAY
     Route: 061
     Dates: start: 20170807

REACTIONS (1)
  - Wound secretion [Unknown]

NARRATIVE: CASE EVENT DATE: 20170807
